FAERS Safety Report 13681129 (Version 1)
Quarter: 2017Q2

REPORT INFORMATION
  Report Type: Spontaneous
  Country: US (occurrence: US)
  Receive Date: 20170622
  Receipt Date: 20170622
  Transmission Date: 20170830
  Serious: Yes (Life-Threatening)
  Sender: FDA-Public Use
  Company Number: None

PATIENT
  Age: 60 Year
  Sex: Male
  Weight: 122.47 kg

DRUGS (2)
  1. HYDROMORPHONE [Suspect]
     Active Substance: HYDROMORPHONE
     Indication: PAIN
     Route: 042
     Dates: start: 20170129, end: 20170130
  2. ZOLPIDEM [Suspect]
     Active Substance: ZOLPIDEM\ZOLPIDEM TARTRATE
     Indication: INSOMNIA
     Route: 048
     Dates: start: 20161213, end: 20170130

REACTIONS (6)
  - Respiratory depression [None]
  - Palpitations [None]
  - Blood urea increased [None]
  - Blood creatinine increased [None]
  - Atrial fibrillation [None]
  - Troponin increased [None]

NARRATIVE: CASE EVENT DATE: 20170130
